FAERS Safety Report 8866986 (Version 1)
Quarter: 2012Q4

REPORT INFORMATION
  Report Type: 
  Country: US (occurrence: US)
  Receive Date: 20121025
  Receipt Date: 20121025
  Transmission Date: 20130627
  Serious: No
  Sender: FDA-Public Use
  Company Number: US-AMGEN-USASP2012014128

PATIENT
  Sex: Male
  Weight: 148.75 kg

DRUGS (10)
  1. ENBREL [Suspect]
     Indication: PRODUCT USED FOR UNKNOWN INDICATION
     Dosage: 50 mg, qwk
     Route: 058
  2. SINGULAIR [Concomitant]
     Dosage: 10 mg, UNK
  3. METHOTREXATE [Concomitant]
     Dosage: 2.5 mg, UNK
  4. PATANASE [Concomitant]
  5. LEVOTHYROXIN [Concomitant]
     Dosage: 100 mug, UNK
  6. TOPROL [Concomitant]
     Dosage: 25 mg, UNK
  7. ZANTAC 75 DISSOLVE [Concomitant]
  8. MIRAPEX [Concomitant]
     Dosage: 0.125 mg, UNK
  9. PREDNISONE [Concomitant]
     Dosage: 10 mg, UNK
  10. TRIAMCINE [Concomitant]
     Dosage: 10 mg/ml, UNK

REACTIONS (1)
  - Sinusitis [Unknown]
